FAERS Safety Report 17418928 (Version 1)
Quarter: 2020Q1

REPORT INFORMATION
  Report Type: Spontaneous
  Country: FI (occurrence: FI)
  Receive Date: 20200214
  Receipt Date: 20200214
  Transmission Date: 20200409
  Serious: Yes (Hospitalization)
  Sender: FDA-Public Use
  Company Number: FI-MYLANLABS-2020M1016113

PATIENT
  Age: 31 Year
  Sex: Male

DRUGS (15)
  1. LEPONEX [Suspect]
     Active Substance: CLOZAPINE
     Indication: PRODUCT USED FOR UNKNOWN INDICATION
     Dosage: 500 MILLIGRAM
  2. QUETIAPINE ORION [Suspect]
     Active Substance: QUETIAPINE FUMARATE
     Indication: PRODUCT USED FOR UNKNOWN INDICATION
     Dosage: 200 MILLIGRAM
     Route: 048
     Dates: start: 20150917
  3. LITO [Suspect]
     Active Substance: LITHIUM CARBONATE
     Dosage: 900 MILLIGRAM, QD
     Route: 048
     Dates: start: 20150225
  4. SERENASE                           /00027401/ [Suspect]
     Active Substance: HALOPERIDOL
     Indication: PRODUCT USED FOR UNKNOWN INDICATION
     Dosage: 6 MILLIGRAM
     Route: 048
     Dates: start: 20160129
  5. LAXOBERON [Suspect]
     Active Substance: SODIUM PICOSULFATE
     Indication: PRODUCT USED FOR UNKNOWN INDICATION
     Dosage: UNK
     Route: 048
     Dates: start: 20150622
  6. DIAPAM                             /00017001/ [Suspect]
     Active Substance: DIAZEPAM
     Indication: PRODUCT USED FOR UNKNOWN INDICATION
     Dosage: UNK
     Route: 048
     Dates: start: 20150409
  7. TOILAX [Suspect]
     Active Substance: BISACODYL
     Indication: PRODUCT USED FOR UNKNOWN INDICATION
     Dosage: UNK
     Route: 054
     Dates: start: 20160415
  8. FROIDIR [Suspect]
     Active Substance: CLOZAPINE
     Indication: PRODUCT USED FOR UNKNOWN INDICATION
     Dosage: 500 MILLIGRAM
     Route: 048
     Dates: start: 20150225
  9. SERENASE                           /00027401/ [Suspect]
     Active Substance: HALOPERIDOL
     Dosage: UNK
     Route: 048
     Dates: start: 20150409
  10. PEGORION [Suspect]
     Active Substance: POLYETHYLENE GLYCOL 4000
     Indication: PRODUCT USED FOR UNKNOWN INDICATION
     Dosage: 24 GRAM
     Route: 048
     Dates: start: 20160419
  11. DEPRAKINE                          /00228501/ [Suspect]
     Active Substance: VALPROATE SODIUM
     Indication: EPILEPSY
     Dosage: 1.5 GRAM, QD
     Route: 048
     Dates: start: 20150225
  12. TENOX                              /00393701/ [Suspect]
     Active Substance: TEMAZEPAM
     Indication: PRODUCT USED FOR UNKNOWN INDICATION
     Dosage: UNK
     Route: 048
     Dates: start: 20150606
  13. VI-SIBLIN /00029101/ [Suspect]
     Active Substance: HERBALS\PLANTAGO OVATA LEAF
     Indication: PRODUCT USED FOR UNKNOWN INDICATION
     Dosage: 2 DOSAGE FORM
     Route: 048
     Dates: start: 20150731
  14. NALTREXONA ACCORD [Suspect]
     Active Substance: NALTREXONE HYDROCHLORIDE
     Indication: PRODUCT USED FOR UNKNOWN INDICATION
     Dosage: 50 MILLIGRAM
     Route: 048
     Dates: start: 20160324
  15. LITO [Suspect]
     Active Substance: LITHIUM CARBONATE
     Indication: HOSTILITY
     Dosage: 750 MILLIGRAM
     Route: 065

REACTIONS (39)
  - Loss of personal independence in daily activities [Unknown]
  - Drooling [Unknown]
  - Hallucination, visual [Unknown]
  - Tremor [Not Recovered/Not Resolved]
  - Substance abuse [Unknown]
  - Muscle contractions involuntary [Not Recovered/Not Resolved]
  - Glassy eyes [Not Recovered/Not Resolved]
  - Epilepsy [Recovered/Resolved]
  - Diplopia [Unknown]
  - Head titubation [Unknown]
  - Restlessness [Unknown]
  - Gastric dilatation [Not Recovered/Not Resolved]
  - Speech disorder [Not Recovered/Not Resolved]
  - Toxicity to various agents [Not Recovered/Not Resolved]
  - Mutism [Unknown]
  - Hypotonia [Unknown]
  - Malaise [Unknown]
  - Dyspnoea [Unknown]
  - Somnolence [Not Recovered/Not Resolved]
  - Constipation [Unknown]
  - Decreased appetite [Not Recovered/Not Resolved]
  - Reduced facial expression [Unknown]
  - Deafness transitory [Unknown]
  - Memory impairment [Unknown]
  - Sudden onset of sleep [Unknown]
  - Nausea [Unknown]
  - Hyperhidrosis [Unknown]
  - Dizziness [Unknown]
  - Dyskinesia [Not Recovered/Not Resolved]
  - Peripheral coldness [Unknown]
  - Mouth breathing [Not Recovered/Not Resolved]
  - Gait disturbance [Not Recovered/Not Resolved]
  - Cyanosis [Unknown]
  - Gynaecomastia [Unknown]
  - Posture abnormal [Not Recovered/Not Resolved]
  - Depressed level of consciousness [Unknown]
  - Hair disorder [Unknown]
  - Dysarthria [Not Recovered/Not Resolved]
  - Heart rate increased [Unknown]

NARRATIVE: CASE EVENT DATE: 201602
